FAERS Safety Report 8113936-5 (Version None)
Quarter: 2012Q1

REPORT INFORMATION
  Report Type: 
  Country: None (occurrence: None)
  Receive Date: 20120203
  Receipt Date: 20120131
  Transmission Date: 20120608
  Serious: Yes (Hospitalization, Other)
  Sender: FDA-Public Use
  Company Number: US-AMGEN-QUU427314

PATIENT
  Age: 74 Year
  Sex: Female

DRUGS (2)
  1. METHOTREXATE [Concomitant]
     Indication: RHEUMATOID ARTHRITIS
     Dosage: UNK
     Route: 058
     Dates: start: 20050101
  2. ENBREL [Suspect]
     Indication: RHEUMATOID ARTHRITIS
     Dosage: 50 MG, 2 TIMES/WK
     Route: 058
     Dates: start: 20050927, end: 20100701

REACTIONS (6)
  - CEREBROVASCULAR ACCIDENT [None]
  - BRONCHITIS [None]
  - MUSCULAR WEAKNESS [None]
  - TREMOR [None]
  - NEOPLASM MALIGNANT [None]
  - PRODUCTIVE COUGH [None]
